FAERS Safety Report 4954527-4 (Version None)
Quarter: 2006Q1

REPORT INFORMATION
  Report Type: 
  Country: None (occurrence: None)
  Receive Date: 20060327
  Receipt Date: 20060228
  Transmission Date: 20060701
  Serious: Yes (Other)
  Sender: FDA-Public Use
  Company Number: CN-NOVOPROD-251261

PATIENT
  Age: 45 Year
  Sex: Female
  Weight: 90 kg

DRUGS (2)
  1. NOVOLOG MIX 70/30 [Suspect]
     Indication: DIABETES MELLITUS
     Dosage: 35+35
     Dates: start: 20051004, end: 20060201
  2. MONOPRIL [Concomitant]
     Dosage: 1 UNK, QD
     Route: 048

REACTIONS (3)
  - ECCHYMOSIS [None]
  - ERYTHEMA [None]
  - INDURATION [None]
